FAERS Safety Report 9403456 (Version 1)
Quarter: 2013Q3

REPORT INFORMATION
  Report Type: Spontaneous
  Country: US (occurrence: US)
  Receive Date: 20130716
  Receipt Date: 20130716
  Transmission Date: 20140515
  Serious: Yes (Death, Other)
  Sender: FDA-Public Use
  Company Number: US-CELGENEUS-163-CCAZA-13071799

PATIENT
  Sex: 0

DRUGS (2)
  1. AZACITIDINE INJECTABLE [Suspect]
     Indication: ACUTE MYELOID LEUKAEMIA
     Dosage: 75 MICROGRAM/SQ. METER
     Route: 041
  2. MIDOSTAURIN [Suspect]
     Indication: ACUTE MYELOID LEUKAEMIA
     Route: 048

REACTIONS (10)
  - Death [Fatal]
  - Acute myeloid leukaemia [Fatal]
  - Hyponatraemia [Unknown]
  - Blood albumin abnormal [Unknown]
  - Intestinal perforation [Unknown]
  - Hepatotoxicity [Unknown]
  - Nausea [Unknown]
  - Vomiting [Unknown]
  - Pain [Unknown]
  - Pneumonia [Unknown]
